FAERS Safety Report 8376012-2 (Version None)
Quarter: 2012Q2

REPORT INFORMATION
  Report Type: 
  Country: None (occurrence: None)
  Receive Date: 20120522
  Receipt Date: 20120515
  Transmission Date: 20120825
  Serious: Yes (Other)
  Sender: FDA-Public Use
  Company Number: PHHY2011CA14765

PATIENT
  Sex: Female

DRUGS (1)
  1. ILARIS [Suspect]
     Indication: CRYOPYRIN ASSOCIATED PERIODIC SYNDROME
     Dosage: UNK UKN, UNK

REACTIONS (7)
  - NAUSEA [None]
  - FATIGUE [None]
  - PNEUMONIA [None]
  - ABDOMINAL PAIN [None]
  - NEUTROPENIA [None]
  - PURPURA [None]
  - VOMITING [None]
